FAERS Safety Report 10271058 (Version 1)
Quarter: 2014Q3

REPORT INFORMATION
  Report Type: Spontaneous
  Country: FR (occurrence: FR)
  Receive Date: 20140701
  Receipt Date: 20140701
  Transmission Date: 20150326
  Serious: Yes (Hospitalization)
  Sender: FDA-Public Use
  Company Number: FR-SA-2014SA081535

PATIENT
  Age: 62 Year
  Sex: Male

DRUGS (16)
  1. ROCEPHIN [Concomitant]
     Active Substance: CEFTRIAXONE SODIUM
     Dates: start: 20140423, end: 20140504
  2. FLAGYL [Concomitant]
     Active Substance: METRONIDAZOLE\METRONIDAZOLE HYDROCHLORIDE
     Route: 042
     Dates: start: 20140424, end: 20140504
  3. NEXIUM [Concomitant]
     Active Substance: ESOMEPRAZOLE MAGNESIUM
  4. TOPALGIC [Concomitant]
     Active Substance: TRAMADOL
     Indication: ABDOMINAL PAIN
     Dates: start: 20140428, end: 20140430
  5. TAZOCILLINE [Concomitant]
     Active Substance: PIPERACILLIN SODIUM\TAZOBACTAM SODIUM
     Dates: start: 20140515
  6. CIFLOX [Suspect]
     Active Substance: CIPROFLOXACIN
     Indication: PRODUCT USED FOR UNKNOWN INDICATION
     Route: 042
     Dates: start: 20140516, end: 20140521
  7. LOVENOX [Suspect]
     Active Substance: ENOXAPARIN SODIUM
     Indication: PRODUCT USED FOR UNKNOWN INDICATION
     Route: 058
     Dates: start: 20140422, end: 20140521
  8. VANCOMYCINE [Suspect]
     Active Substance: VANCOMYCIN
     Indication: PRODUCT USED FOR UNKNOWN INDICATION
     Route: 042
     Dates: start: 20140424, end: 20140521
  9. LEXOMIL [Concomitant]
     Active Substance: BROMAZEPAM
  10. INEXIUM [Concomitant]
     Active Substance: ESOMEPRAZOLE
  11. GENTAMICIN [Concomitant]
     Active Substance: GENTAMICIN
     Dates: start: 20140423, end: 20140425
  12. MORPHINE [Concomitant]
     Active Substance: MORPHINE
     Dates: start: 20140515
  13. SPASFON [Suspect]
     Active Substance: PHLOROGLUCINOL
     Indication: PRODUCT USED FOR UNKNOWN INDICATION
     Route: 042
     Dates: start: 20140428, end: 20140521
  14. ACUPAN [Concomitant]
     Active Substance: NEFOPAM HYDROCHLORIDE
     Dates: start: 20140515, end: 20140518
  15. DROLEPTAN [Concomitant]
     Active Substance: DROPERIDOL
  16. VALIUM [Concomitant]
     Active Substance: DIAZEPAM

REACTIONS (6)
  - Drug reaction with eosinophilia and systemic symptoms [Recovering/Resolving]
  - Eosinophilia [Recovering/Resolving]
  - Rash [Recovering/Resolving]
  - Rash maculo-papular [Recovering/Resolving]
  - Cheilitis [Recovering/Resolving]
  - Lip exfoliation [Recovering/Resolving]

NARRATIVE: CASE EVENT DATE: 20140518
